FAERS Safety Report 10395880 (Version 1)
Quarter: 2014Q3

REPORT INFORMATION
  Report Type: Spontaneous
  Country: GB (occurrence: None)
  Receive Date: 20140818
  Receipt Date: 20140818
  Transmission Date: 20150326
  Serious: Yes (Other)
  Sender: FDA-Public Use
  Company Number: SYM-2014-24081

PATIENT
  Sex: Female

DRUGS (4)
  1. TIMOLOL MALEATE. [Suspect]
     Active Substance: TIMOLOL MALEATE
     Indication: PRODUCT USED FOR UNKNOWN INDICATION
     Route: 047
     Dates: start: 2007
  2. VISCOTEARS [Suspect]
     Active Substance: CARBOMER
     Indication: DRY EYE
     Route: 047
     Dates: start: 20070830, end: 20080325
  3. DIAZEPAM (DIAZEPAM) [Concomitant]
     Active Substance: DIAZEPAM
  4. LIQUIFILM TEARS (POLYVINYL ALCOHOL) (POLYVINYL ALCOHOL) [Concomitant]

REACTIONS (4)
  - Visual impairment [None]
  - Anxiety [None]
  - Dry eye [None]
  - Eye movement disorder [None]

NARRATIVE: CASE EVENT DATE: 2007
